FAERS Safety Report 14151581 (Version 1)
Quarter: 2017Q4

REPORT INFORMATION
  Report Type: Spontaneous
  Country: FR (occurrence: FR)
  Receive Date: 20171102
  Receipt Date: 20171102
  Transmission Date: 20180321
  Serious: Yes (Hospitalization, Other)
  Sender: FDA-Public Use
  Company Number: FR-BAXTER-2017BAX036994

PATIENT
  Age: 55 Year
  Sex: Female

DRUGS (33)
  1. CHLORURE DE SODIUM 0,9 % BIOPERF, SOLUTION POUR PERFUSION [Suspect]
     Active Substance: SODIUM CHLORIDE
     Indication: ADVERSE EVENT
     Route: 065
     Dates: start: 20170919
  2. ENDOXAN 1000 MG, POUDRE POUR SOLUTIONINJECTABLE [Suspect]
     Active Substance: CYCLOPHOSPHAMIDE
     Dosage: DAY 28
     Route: 042
     Dates: start: 20160419, end: 20160419
  3. ENDOXAN 1000 MG, POUDRE POUR SOLUTIONINJECTABLE [Suspect]
     Active Substance: CYCLOPHOSPHAMIDE
     Dosage: COMPLETED 6 CYCLES.
     Route: 042
     Dates: end: 201606
  4. ENDOXAN 1000 MG, POUDRE POUR SOLUTIONINJECTABLE [Suspect]
     Active Substance: CYCLOPHOSPHAMIDE
     Dosage: CYCLE 5
     Route: 042
     Dates: start: 20170919, end: 20170919
  5. GENTAMYCINE [Suspect]
     Active Substance: GENTAMICIN
     Indication: ADVERSE EVENT
     Route: 065
     Dates: start: 20170919
  6. CORTANCYL [Concomitant]
     Active Substance: PREDNISONE
     Indication: PRODUCT USED FOR UNKNOWN INDICATION
     Route: 065
  7. VALACICLOVIR [Concomitant]
     Active Substance: VALACYCLOVIR HYDROCHLORIDE
     Indication: PRODUCT USED FOR UNKNOWN INDICATION
     Route: 065
  8. CETIRIZINE [Concomitant]
     Active Substance: CETIRIZINE HYDROCHLORIDE
     Indication: PRODUCT USED FOR UNKNOWN INDICATION
     Route: 065
  9. VERATRAN [Concomitant]
     Active Substance: CLOTIAZEPAM
     Indication: PRODUCT USED FOR UNKNOWN INDICATION
     Route: 048
  10. ENDOXAN 1000 MG, POUDRE POUR SOLUTIONINJECTABLE [Suspect]
     Active Substance: CYCLOPHOSPHAMIDE
     Dosage: CYCLE 4, DOSE ALSO REPORTED AS 1000 MG
     Route: 042
     Dates: start: 20170828, end: 20170828
  11. MYCOPHENOLATE MOFETIL. [Suspect]
     Active Substance: MYCOPHENOLATE MOFETIL
     Indication: ANTISYNTHETASE SYNDROME
     Route: 065
     Dates: start: 201607, end: 201705
  12. PIPERACILLIN AND TAZOBACTAM [Suspect]
     Active Substance: PIPERACILLIN SODIUM\TAZOBACTAM SODIUM
     Indication: ADVERSE EVENT
     Route: 065
     Dates: start: 20170919
  13. SPIRIVA [Concomitant]
     Active Substance: TIOTROPIUM BROMIDE MONOHYDRATE
     Indication: PRODUCT USED FOR UNKNOWN INDICATION
     Route: 065
  14. UROMITEXAN 600 MG, COMPRIM? PELLICUL? S?CABLE [Suspect]
     Active Substance: MESNA
     Dosage: COMPLETED 6 CYCLES
     Route: 048
     Dates: end: 201606
  15. MESNA EG [Suspect]
     Active Substance: MESNA
     Indication: CHEMOTHERAPY UROTHELIAL TOXICITY ATTENUATION
     Route: 042
     Dates: start: 20170828, end: 20170919
  16. CEFTRIAXONE. [Suspect]
     Active Substance: CEFTRIAXONE
     Indication: ADVERSE EVENT
     Route: 065
     Dates: start: 20170828
  17. VENLAFAXINE [Concomitant]
     Active Substance: VENLAFAXINE HYDROCHLORIDE
     Indication: PRODUCT USED FOR UNKNOWN INDICATION
     Route: 065
  18. UROMITEXAN 600 MG, COMPRIM? PELLICUL? S?CABLE [Suspect]
     Active Substance: MESNA
     Dosage: DAY 28
     Route: 048
     Dates: start: 20160419, end: 20160419
  19. UROMITEXAN 600 MG, COMPRIM? PELLICUL? S?CABLE [Suspect]
     Active Substance: MESNA
     Route: 048
     Dates: start: 20170828, end: 20170919
  20. ZOPHREN [Concomitant]
     Active Substance: ONDANSETRON
     Indication: PRODUCT USED FOR UNKNOWN INDICATION
     Route: 065
  21. UROMITEXAN 600 MG, COMPRIM? PELLICUL? S?CABLE [Suspect]
     Active Substance: MESNA
     Indication: CHEMOTHERAPY UROTHELIAL TOXICITY ATTENUATION
     Dosage: DAY 1
     Route: 048
     Dates: start: 20160321, end: 20160321
  22. UROMITEXAN 600 MG, COMPRIM? PELLICUL? S?CABLE [Suspect]
     Active Substance: MESNA
     Route: 048
     Dates: start: 20160509
  23. ENDOXAN 1000 MG, POUDRE POUR SOLUTIONINJECTABLE [Suspect]
     Active Substance: CYCLOPHOSPHAMIDE
     Indication: ANTISYNTHETASE SYNDROME
     Dosage: DAY 1
     Route: 042
     Dates: start: 20160321, end: 20160321
  24. ENDOXAN 1000 MG, POUDRE POUR SOLUTIONINJECTABLE [Suspect]
     Active Substance: CYCLOPHOSPHAMIDE
     Indication: DISEASE RECURRENCE
     Dosage: DAY 15
     Route: 042
     Dates: start: 20160404, end: 20160404
  25. SPIRAMYCINE [Suspect]
     Active Substance: SPIRAMYCIN
     Indication: ADVERSE EVENT
     Route: 065
     Dates: start: 20170828
  26. NOREPINEPHRINE. [Suspect]
     Active Substance: NOREPINEPHRINE
     Indication: ADVERSE EVENT
     Dosage: ELECTRICAL SYRINGE 0.25 GAMMA/KG/MIN
     Route: 042
     Dates: start: 20170919
  27. UROMITEXAN 600 MG, COMPRIM? PELLICUL? S?CABLE [Suspect]
     Active Substance: MESNA
     Dosage: DAY 15
     Route: 048
     Dates: start: 20160404, end: 20160404
  28. ENDOXAN 1000 MG, POUDRE POUR SOLUTIONINJECTABLE [Suspect]
     Active Substance: CYCLOPHOSPHAMIDE
     Route: 042
     Dates: start: 20160509
  29. ENDOXAN 1000 MG, POUDRE POUR SOLUTIONINJECTABLE [Suspect]
     Active Substance: CYCLOPHOSPHAMIDE
     Dosage: 3 NEW CYCLES, DOSE ALSO REPORTED AS 920 MG ON DAY 1 DAY 15 AND DAY 28
     Route: 042
     Dates: start: 2017, end: 2017
  30. INEXIUM [Concomitant]
     Active Substance: ESOMEPRAZOLE
     Indication: PRODUCT USED FOR UNKNOWN INDICATION
     Route: 065
  31. WELLVONE [Concomitant]
     Active Substance: ATOVAQUONE
     Indication: PRODUCT USED FOR UNKNOWN INDICATION
     Route: 065
  32. DEXCHLORPHENIRAMINE [Suspect]
     Active Substance: DEXCHLORPHENIRAMINE
     Indication: ADVERSE EVENT
     Dosage: 1 VIAL
     Route: 065
     Dates: start: 20170919
  33. DIFFU-K [Concomitant]
     Active Substance: POTASSIUM CHLORIDE
     Indication: PRODUCT USED FOR UNKNOWN INDICATION
     Route: 065

REACTIONS (20)
  - Sepsis [Unknown]
  - Condition aggravated [Unknown]
  - Weight decreased [Unknown]
  - Asthenia [Unknown]
  - Nausea [Unknown]
  - Malaise [Recovered/Resolved]
  - Pleural effusion [Unknown]
  - Hypotension [Unknown]
  - General physical health deterioration [Unknown]
  - Tachycardia [Unknown]
  - Antisynthetase syndrome [Unknown]
  - Decreased appetite [Unknown]
  - Pyrexia [Unknown]
  - Disease recurrence [Unknown]
  - Hypersensitivity [Recovered/Resolved]
  - Erythrosis [Unknown]
  - Haemoptysis [Unknown]
  - Dyspnoea [Unknown]
  - Circulatory collapse [Recovered/Resolved]
  - Respiratory disorder [Unknown]

NARRATIVE: CASE EVENT DATE: 201611
